FAERS Safety Report 11080366 (Version 1)
Quarter: 2015Q2

REPORT INFORMATION
  Report Type: Spontaneous
  Country: US (occurrence: None)
  Receive Date: 20150429
  Receipt Date: 20150429
  Transmission Date: 20150821
  Serious: Yes (Other)
  Sender: FDA-Public Use
  Company Number: 001903142A

PATIENT
  Age: 59 Year
  Sex: Female

DRUGS (9)
  1. PROACTIVPLUS SKIN SMOOTHING EXFOLIATOR [Suspect]
     Active Substance: BENZOYL PEROXIDE
     Indication: ACNE
     Dosage: ONCE, DERMAL
     Dates: start: 20150307
  2. METOPROLOL [Concomitant]
     Active Substance: METOPROLOL
  3. PTSD MEDICATION [Concomitant]
  4. PROACTIV PLUS SKIN PURIFYING MASK [Suspect]
     Active Substance: SULFUR
     Indication: ACNE
     Dosage: ONCE, DERMAL
     Dates: start: 20150307
  5. PROACTIV PLUS COMPLEXION PERFECTING HYDRATOR [Suspect]
     Active Substance: SALICYLIC ACID
     Indication: ACNE
     Dosage: ONCE, DERMAL
     Dates: start: 20150307
  6. VALPROIC ACID. [Concomitant]
     Active Substance: VALPROIC ACID
  7. PROACTIV PLUS PORE TARGETING TREATMENT [Suspect]
     Active Substance: BENZOYL PEROXIDE
     Indication: ACNE
     Dosage: ONCE, DERMAL
     Dates: start: 20150307
  8. PROACTIV PLUS MARK FADING [Suspect]
     Active Substance: GLYCOLIC ACID\SALICYLIC ACID
     Indication: ACNE
     Dosage: ONCE, DERMAL
     Dates: start: 20150307
  9. EPIPEN [Concomitant]
     Active Substance: EPINEPHRINE

REACTIONS (4)
  - Skin discolouration [None]
  - Urticaria [None]
  - Drug hypersensitivity [None]
  - Burning sensation [None]

NARRATIVE: CASE EVENT DATE: 20150307
